FAERS Safety Report 20895874 (Version 2)
Quarter: 2022Q2

REPORT INFORMATION
  Report Type: Spontaneous
  Country: US (occurrence: US)
  Receive Date: 20220531
  Receipt Date: 20220622
  Transmission Date: 20220721
  Serious: Yes (Hospitalization)
  Sender: FDA-Public Use
  Company Number: US-AMGEN-USASP2022093258

PATIENT
  Age: 60 Year
  Sex: Male

DRUGS (18)
  1. ENBREL [Suspect]
     Active Substance: ETANERCEPT
     Indication: Rheumatoid arthritis
     Dosage: UNK
     Route: 058
     Dates: start: 20220104
  2. ENBREL [Suspect]
     Active Substance: ETANERCEPT
     Dosage: 50 MILLIGRAM, QWK
     Route: 058
  3. AMLODIPINE BESYLATE [Concomitant]
     Active Substance: AMLODIPINE BESYLATE
     Dosage: 10 MILLIGRAM
  4. ATORVASTATIN [Concomitant]
     Active Substance: ATORVASTATIN
     Dosage: 40 MILLIGRAM
  5. CYCLOBENZAPRINE [Concomitant]
     Active Substance: CYCLOBENZAPRINE
     Dosage: 10 MILLIGRAM
  6. FARXIGA [Concomitant]
     Active Substance: DAPAGLIFLOZIN PROPANEDIOL
     Dosage: 10 MILLIGRAM
  7. FOLIC ACID [Concomitant]
     Active Substance: FOLIC ACID
     Dosage: 1 MILLIGRAM
  8. HUMALOG [Concomitant]
     Active Substance: INSULIN LISPRO
     Dosage: 100 UNIT, UNK
  9. LEVEMIR [Concomitant]
     Active Substance: INSULIN DETEMIR
     Dosage: UNK
  10. Flex [Concomitant]
     Dosage: UNK
  11. SOP [Concomitant]
     Dosage: 100 UNIT, UNK
  12. LOSARTAN POTASSIUM [Concomitant]
     Active Substance: LOSARTAN POTASSIUM
     Dosage: 100 MILLIGRAM
  13. MONTELUKAST [Concomitant]
     Active Substance: MONTELUKAST SODIUM
     Dosage: 10 MILLIGRAM
  14. OMEPRAZOLE [Concomitant]
     Active Substance: OMEPRAZOLE
     Dosage: UNK
  15. CPD [Concomitant]
     Active Substance: ANHYDROUS CITRIC ACID\DEXTROSE MONOHYDRATE\SODIUM PHOSPHATE, MONOBASIC, MONOHYDRATE\TRISODIUM CITRAT
     Dosage: 40 MILLIGRAM
  16. PIOGLITAZONE [Concomitant]
     Active Substance: PIOGLITAZONE
     Dosage: 15 MILLIGRAM
  17. PREDNISONE [Concomitant]
     Active Substance: PREDNISONE
     Dosage: 2.5 MILLIGRAM
  18. SERTRALINE HYDROCHLORIDE [Concomitant]
     Active Substance: SERTRALINE HYDROCHLORIDE
     Dosage: 100 MILLIGRAM

REACTIONS (2)
  - Unevaluable event [Unknown]
  - Depression [Not Recovered/Not Resolved]

NARRATIVE: CASE EVENT DATE: 20220101
